FAERS Safety Report 11849508 (Version 2)
Quarter: 2016Q1

REPORT INFORMATION
  Report Type: Spontaneous
  Country: US (occurrence: US)
  Receive Date: 20151218
  Receipt Date: 20160119
  Transmission Date: 20160526
  Serious: No
  Sender: FDA-Public Use
  Company Number: US-VIFOR (INTERNATIONAL) INC.-VIT-2015-03361

PATIENT
  Age: 69 Year
  Sex: Male
  Weight: 101 kg

DRUGS (18)
  1. VITAMIN D [Concomitant]
     Active Substance: CHOLECALCIFEROL
     Route: 048
  2. VICODIN [Concomitant]
     Active Substance: ACETAMINOPHEN\HYDROCODONE BITARTRATE
     Indication: PAIN
     Route: 048
  3. VITAMIN D3 [Concomitant]
     Active Substance: CHOLECALCIFEROL
     Route: 048
  4. PREDNISONE. [Concomitant]
     Active Substance: PREDNISONE
     Route: 048
  5. ASPIRIN CHILDREN [Concomitant]
     Active Substance: ASPIRIN
     Route: 048
  6. HYDRALAZINE [Concomitant]
     Active Substance: HYDRALAZINE HYDROCHLORIDE
     Route: 048
  7. LEVODOPA/CARBIDOPA [Concomitant]
     Route: 048
  8. CASODEX [Concomitant]
     Active Substance: BICALUTAMIDE
     Route: 048
  9. IPRATROPIUM BROMIDE. [Concomitant]
     Active Substance: IPRATROPIUM BROMIDE
  10. PRAVASTATIN [Concomitant]
     Active Substance: PRAVASTATIN\PRAVASTATIN SODIUM
     Route: 048
  11. MIRCERA [Suspect]
     Active Substance: METHOXY POLYETHYLENE GLYCOL-EPOETIN BETA
     Indication: HAEMOGLOBIN DECREASED
     Route: 042
     Dates: start: 20150901, end: 20151103
  12. BICALUTAMIDE. [Concomitant]
     Active Substance: BICALUTAMIDE
     Route: 048
  13. CLINDAMYCIN HYDROCHLORIDE. [Concomitant]
     Active Substance: CLINDAMYCIN HYDROCHLORIDE
     Route: 048
  14. METOPROLOL TARTRATE. [Concomitant]
     Active Substance: METOPROLOL TARTRATE
     Route: 048
  15. VITAMIN D3 [Concomitant]
     Active Substance: CHOLECALCIFEROL
     Route: 048
  16. ACETAMINOPHEN. [Concomitant]
     Active Substance: ACETAMINOPHEN
     Indication: PAIN
     Route: 048
  17. OMEPRAZOLE. [Concomitant]
     Active Substance: OMEPRAZOLE
     Route: 048
  18. ALBUTEROL SULFATE. [Concomitant]
     Active Substance: ALBUTEROL SULFATE
     Dosage: 1 VIAL

REACTIONS (2)
  - Blister [Recovered/Resolved with Sequelae]
  - Rash [Recovered/Resolved with Sequelae]

NARRATIVE: CASE EVENT DATE: 20150905
